FAERS Safety Report 14377401 (Version 2)
Quarter: 2018Q1

REPORT INFORMATION
  Report Type: Spontaneous
  Country: US (occurrence: US)
  Receive Date: 20180111
  Receipt Date: 20180201
  Transmission Date: 20180509
  Serious: Yes (Other)
  Sender: FDA-Public Use
  Company Number: US-PFIZER INC-2018009394

PATIENT
  Age: 70 Year
  Sex: Female
  Weight: 102.6 kg

DRUGS (5)
  1. DILTIAZEM HCL ER [Concomitant]
     Active Substance: DILTIAZEM HYDROCHLORIDE
     Indication: ATRIAL FIBRILLATION
     Dosage: 240 MG, 1X/DAY
     Route: 048
     Dates: start: 2016
  2. ATENOLOL. [Concomitant]
     Active Substance: ATENOLOL
     Indication: HYPERTENSION
     Dosage: 100 MG, DAILY
     Route: 048
     Dates: start: 2002
  3. WARFARIN [Concomitant]
     Active Substance: WARFARIN
     Indication: ATRIAL FIBRILLATION
     Dosage: 5-7.5MG TABLET AS DIRECTED
     Route: 048
     Dates: start: 2016
  4. TIKOSYN [Suspect]
     Active Substance: DOFETILIDE
     Dosage: 0.25 MG, 2X/DAY (IN MORNING AND AT BEDTIME)
     Route: 048
     Dates: end: 20171218
  5. TIKOSYN [Suspect]
     Active Substance: DOFETILIDE
     Indication: ATRIAL FIBRILLATION
     Dosage: 10 MG, 2X/DAY
     Dates: start: 201610

REACTIONS (3)
  - Insomnia [Unknown]
  - Rectal haemorrhage [Recovered/Resolved]
  - Product use issue [Unknown]

NARRATIVE: CASE EVENT DATE: 201610
